FAERS Safety Report 4643099-X (Version None)
Quarter: 2005Q2

REPORT INFORMATION
  Report Type: 
  Country: None (occurrence: None)
  Receive Date: 20050422
  Receipt Date: 20041215
  Transmission Date: 20051028
  Serious: Yes (Other)
  Sender: FDA-Public Use
  Company Number: 2004111214

PATIENT
  Sex: Female
  Weight: 53.5244 kg

DRUGS (5)
  1. CELEBREX [Suspect]
     Indication: ARTHRITIS
     Dosage: ORAL
     Route: 048
     Dates: end: 20041028
  2. ALL OTHER NON-THERAPEUTIC PRODUCTS (ALL OTHER NON-THERAPEUTIC PRODUCTS [Suspect]
     Indication: ILL-DEFINED DISORDER
  3. RALOXIFENE HCL [Concomitant]
  4. ACETAMINOPHEN [Concomitant]
  5. ESCITALOPRAM OXALATE [Concomitant]

REACTIONS (7)
  - ABDOMINAL DISTENSION [None]
  - ANAL FISSURE [None]
  - CONDITION AGGRAVATED [None]
  - DIARRHOEA [None]
  - DRUG INEFFECTIVE [None]
  - HAEMORRHOIDS [None]
  - X-RAY OF PELVIS AND HIP ABNORMAL [None]
